FAERS Safety Report 23320564 (Version 1)
Quarter: 2023Q4

REPORT INFORMATION
  Report Type: Spontaneous
  Country: US (occurrence: US)
  Receive Date: 20231220
  Receipt Date: 20231220
  Transmission Date: 20240110
  Serious: No
  Sender: FDA-Public Use
  Company Number: US-PFIZER INC-202300440195

PATIENT
  Age: 9 Year
  Sex: Female
  Weight: 22.676 kg

DRUGS (9)
  1. OXBRYTA [Interacting]
     Active Substance: VOXELOTOR
     Indication: Sickle cell disease
     Dosage: 3 DF, ALTERNATE DAY (3 TABLETS EVERY TWO DAYS)
     Route: 048
  2. OXBRYTA [Interacting]
     Active Substance: VOXELOTOR
     Dosage: 3 DF, DAILY (3 TABLETS A DAY)
     Route: 048
  3. OXBRYTA [Interacting]
     Active Substance: VOXELOTOR
     Dosage: 2 DF, DAILY (WENT DOWN TO TWO)
  4. OXBRYTA [Interacting]
     Active Substance: VOXELOTOR
     Dosage: 3 DF, DAILY (GO BACK TO THREE)
     Route: 048
     Dates: start: 20231206, end: 202312
  5. OXBRYTA [Interacting]
     Active Substance: VOXELOTOR
     Dosage: UNK, 3X/DAY (3 TIMES A DAY)
     Route: 048
     Dates: start: 202312
  6. FOLIC ACID [Concomitant]
     Active Substance: FOLIC ACID
     Dosage: UNK
  7. ALBUTEROL [Concomitant]
     Active Substance: ALBUTEROL
     Dosage: UNK
  8. INFLAMASE [Concomitant]
     Dosage: UNK
  9. HYDROXYUREA [Concomitant]
     Active Substance: HYDROXYUREA
     Dosage: UNK

REACTIONS (5)
  - Urticaria [Recovered/Resolved]
  - Pyrexia [Unknown]
  - Hypersensitivity [Unknown]
  - Haemoglobin abnormal [Unknown]
  - Off label use [Unknown]

NARRATIVE: CASE EVENT DATE: 20231206
